FAERS Safety Report 8232026-4 (Version None)
Quarter: 2012Q1

REPORT INFORMATION
  Report Type: 
  Country: None (occurrence: None)
  Receive Date: 20120323
  Receipt Date: 20120315
  Transmission Date: 20120608
  Serious: Yes (Other)
  Sender: FDA-Public Use
  Company Number: CZ-JNJFOC-20120309528

PATIENT
  Sex: Female

DRUGS (24)
  1. RISPERIDONE [Suspect]
     Indication: DEPRESSION
     Route: 065
  2. MIRTAZAPINE [Suspect]
     Indication: ANXIETY
     Route: 065
  3. OLANZAPINE [Suspect]
     Indication: SCHIZOPHRENIA
     Route: 065
  4. MIRTAZAPINE [Suspect]
     Indication: SCHIZOPHRENIA
     Route: 065
  5. VENLAFAXINE [Suspect]
     Indication: ANXIETY
     Route: 065
  6. TRAZODONE HCL [Suspect]
     Indication: DEPRESSION
     Route: 065
  7. OLANZAPINE [Suspect]
     Indication: DEPRESSION
     Route: 065
  8. TRAZODONE HCL [Suspect]
     Indication: SCHIZOPHRENIA
     Route: 065
  9. OLANZAPINE [Suspect]
     Indication: ANXIETY
     Route: 065
  10. RISPERIDONE [Suspect]
     Indication: SCHIZOPHRENIA
     Route: 065
  11. VENLAFAXINE [Suspect]
     Indication: DEPRESSION
     Route: 065
  12. ZIPRASIDONE HYDROCHLORIDE [Suspect]
     Indication: SCHIZOPHRENIA
     Route: 065
  13. RISPERIDONE [Suspect]
     Indication: ANXIETY
     Route: 065
  14. ZIPRASIDONE HYDROCHLORIDE [Suspect]
     Indication: ANXIETY
     Route: 065
  15. QUETIAPINE [Suspect]
     Indication: SCHIZOPHRENIA
     Route: 065
  16. MIRTAZAPINE [Suspect]
     Indication: DEPRESSION
     Route: 065
  17. ARIPIPRAZOLE [Suspect]
     Indication: DEPRESSION
     Route: 065
  18. VENLAFAXINE [Suspect]
     Indication: SCHIZOPHRENIA
     Route: 065
  19. TRAZODONE HCL [Suspect]
     Indication: ANXIETY
     Route: 065
  20. ARIPIPRAZOLE [Suspect]
     Indication: ANXIETY
     Route: 065
  21. ARIPIPRAZOLE [Suspect]
     Indication: SCHIZOPHRENIA
     Route: 065
  22. QUETIAPINE [Suspect]
     Indication: ANXIETY
     Route: 065
  23. QUETIAPINE [Suspect]
     Indication: DEPRESSION
     Route: 065
  24. ZIPRASIDONE HYDROCHLORIDE [Suspect]
     Indication: DEPRESSION
     Route: 065

REACTIONS (2)
  - ABORTION SPONTANEOUS [None]
  - MATERNAL EXPOSURE DURING PREGNANCY [None]
